FAERS Safety Report 9646229 (Version 3)
Quarter: 2013Q4

REPORT INFORMATION
  Report Type: Spontaneous
  Country: SI (occurrence: SI)
  Receive Date: 20131025
  Receipt Date: 20131126
  Transmission Date: 20140711
  Serious: Yes (Death, Life-Threatening)
  Sender: FDA-Public Use
  Company Number: SI-CUBIST PHARMACEUTICAL, INC.-2013CBST001027

PATIENT
  Sex: 0

DRUGS (4)
  1. CUBICIN [Suspect]
     Indication: STAPHYLOCOCCAL SEPSIS
     Dosage: 10 MG/KG, Q24H
     Route: 065
     Dates: start: 20131019, end: 20131027
  2. CUBICIN [Suspect]
     Indication: MENINGITIS
     Dosage: 800 MG, Q24H
     Route: 065
     Dates: start: 20131019, end: 20131027
  3. CUBICIN [Suspect]
     Indication: OFF LABEL USE
  4. CEFEPIME [Concomitant]
     Indication: PRODUCT USED FOR UNKNOWN INDICATION
     Dosage: UNK UNK, UNK
     Route: 065
     Dates: start: 20131016, end: 20131027

REACTIONS (4)
  - Septic shock [Fatal]
  - Pneumonia [Unknown]
  - Renal impairment [Unknown]
  - Sepsis [Unknown]
